FAERS Safety Report 14894722 (Version 1)
Quarter: 2018Q2

REPORT INFORMATION
  Report Type: Report from Study
  Country: US (occurrence: US)
  Receive Date: 20180515
  Receipt Date: 20180515
  Transmission Date: 20180711
  Serious: No
  Sender: FDA-Public Use
  Company Number: US-ROCHE-2120740

PATIENT
  Age: 74 Year
  Sex: Female

DRUGS (3)
  1. OCREVUS [Suspect]
     Active Substance: OCRELIZUMAB
     Indication: MULTIPLE SCLEROSIS
     Route: 065
     Dates: start: 201711
  2. FISH OIL [Concomitant]
     Active Substance: FISH OIL
  3. BACLOFEN. [Concomitant]
     Active Substance: BACLOFEN
     Indication: MUSCLE RELAXANT THERAPY
     Dosage: FOR 20 YEARS
     Route: 065

REACTIONS (5)
  - Secretion discharge [Unknown]
  - Vertigo [Recovered/Resolved]
  - Ear infection [Unknown]
  - Unevaluable event [Unknown]
  - Ear disorder [Unknown]

NARRATIVE: CASE EVENT DATE: 201804
